FAERS Safety Report 5468953-0 (Version None)
Quarter: 2007Q3

REPORT INFORMATION
  Report Type: 
  Country: None (occurrence: None)
  Receive Date: 20070820
  Receipt Date: 20070511
  Transmission Date: 20080115
  Serious: No
  Sender: FDA-Public Use
  Company Number: WAES 0703USA05365

PATIENT
  Age: 49 Year
  Sex: Male

DRUGS (15)
  1. JANUVIA [Suspect]
     Indication: TYPE 2 DIABETES MELLITUS
     Dosage: 100 MG/DAILY/PO
     Route: 048
     Dates: start: 20070221, end: 20070316
  2. GLUCOPHAGE XR [Concomitant]
  3. GLYSET [Concomitant]
  4. HUMALOG [Concomitant]
  5. HUMALOG MIX 75/25 [Concomitant]
  6. HYZAAR [Concomitant]
  7. LIPITOR [Concomitant]
  8. NASONEX [Concomitant]
  9. TOPAMAX [Concomitant]
  10. TOPROL-XL [Concomitant]
  11. VALIUM [Concomitant]
  12. VIAGRA [Concomitant]
  13. BETAMETHASONE VALERATE [Concomitant]
  14. FOSINOPRIL SODIUM (+) HYDROCHLOR [Concomitant]
  15. NORTRIPTYLINE HCL [Concomitant]

REACTIONS (4)
  - DYSPNOEA [None]
  - OEDEMA PERIPHERAL [None]
  - RASH ERYTHEMATOUS [None]
  - RASH MACULO-PAPULAR [None]
